FAERS Safety Report 11988474 (Version 1)
Quarter: 2016Q1

REPORT INFORMATION
  Report Type: Spontaneous
  Country: US (occurrence: US)
  Receive Date: 20160202
  Receipt Date: 20160202
  Transmission Date: 20160526
  Serious: No
  Sender: FDA-Public Use
  Company Number: CHPA2016US001515

PATIENT
  Age: 73 Year
  Sex: Female

DRUGS (1)
  1. IBUPROFEN. [Suspect]
     Active Substance: IBUPROFEN
     Indication: ENDODONTIC PROCEDURE
     Dosage: 2 DF, UNK
     Dates: start: 20160125, end: 20160125

REACTIONS (3)
  - Peripheral swelling [Recovering/Resolving]
  - Rash [Unknown]
  - Paraesthesia [Recovering/Resolving]

NARRATIVE: CASE EVENT DATE: 20160125
